FAERS Safety Report 25334648 (Version 1)
Quarter: 2025Q2

REPORT INFORMATION
  Report Type: Spontaneous
  Country: FR (occurrence: FR)
  Receive Date: 20250520
  Receipt Date: 20250520
  Transmission Date: 20250717
  Serious: Yes (Hospitalization, Other)
  Sender: CHEPLAPHARM
  Company Number: None

PATIENT
  Age: 25 Year
  Sex: Male

DRUGS (4)
  1. CLONAZEPAM [Suspect]
     Active Substance: CLONAZEPAM
  2. CANNABIS SATIVA SUBSP. INDICA TOP [Suspect]
     Active Substance: CANNABIS SATIVA SUBSP. INDICA TOP
  3. PREGABALIN [Suspect]
     Active Substance: PREGABALIN
  4. ALCOHOL [Suspect]
     Active Substance: ALCOHOL

REACTIONS (6)
  - Coma [Recovered/Resolved]
  - Hypotension [Recovered/Resolved]
  - Hypothermia [Recovered/Resolved]
  - Drug use disorder [Unknown]
  - Head injury [Unknown]
  - Scar [Unknown]

NARRATIVE: CASE EVENT DATE: 20250102
